FAERS Safety Report 6576505-4 (Version None)
Quarter: 2010Q1

REPORT INFORMATION
  Report Type: 
  Country: None (occurrence: None)
  Receive Date: 20100210
  Receipt Date: 20100201
  Transmission Date: 20100710
  Serious: Yes (Hospitalization)
  Sender: FDA-Public Use
  Company Number: DE-ASTRAZENECA-2010SE04780

PATIENT
  Age: 56 Year
  Sex: Male
  Weight: 79 kg

DRUGS (9)
  1. BELOC ZOK [Interacting]
     Indication: HYPERTENSION
     Route: 048
     Dates: start: 20000101
  2. RAMIPRIL [Interacting]
     Indication: HYPERTENSION
     Route: 048
     Dates: start: 20000101
  3. AZATHIOPRINE [Suspect]
     Indication: COLITIS ULCERATIVE
     Route: 048
     Dates: start: 20080401
  4. AZATHIOPRINE [Suspect]
     Route: 048
     Dates: start: 20090801
  5. ISCOVER [Interacting]
     Indication: CORONARY ARTERY DISEASE
     Route: 048
     Dates: start: 20040101, end: 20090824
  6. VEROSPIRON [Interacting]
     Indication: HYPERTENSION
     Route: 048
     Dates: start: 20030101
  7. SIMVA HENNIG [Interacting]
     Indication: DYSLIPIDAEMIA
     Route: 048
     Dates: start: 20030101
  8. HUMALOG [Concomitant]
     Indication: DIABETES MELLITUS
     Route: 058
     Dates: start: 20020101
  9. LANTUS [Concomitant]
     Indication: DIABETES MELLITUS
     Route: 058
     Dates: start: 20020101

REACTIONS (3)
  - DRUG INTERACTION [None]
  - HEPATIC CIRRHOSIS [None]
  - PANCYTOPENIA [None]
